FAERS Safety Report 5740124-X (Version None)
Quarter: 2008Q2

REPORT INFORMATION
  Report Type: 
  Country: None (occurrence: None)
  Receive Date: 20080516
  Receipt Date: 20080507
  Transmission Date: 20081010
  Serious: Yes (Hospitalization, Disabling, Other)
  Sender: FDA-Public Use
  Company Number: US-ABBOTT-08P-163-0450867-00

PATIENT
  Age: 52 Year
  Sex: Male

DRUGS (5)
  1. NORVIR [Suspect]
     Indication: DRUG USE FOR UNKNOWN INDICATION
  2. INTERFERON [Suspect]
     Indication: HEPATITIS C
  3. ZIDOVUDINE [Interacting]
     Indication: DRUG USE FOR UNKNOWN INDICATION
  4. ATAZANAVIR SULFATE [Concomitant]
     Indication: DRUG USE FOR UNKNOWN INDICATION
  5. LAMIVUDINE + ZIDOVUDINE [Concomitant]
     Indication: DRUG USE FOR UNKNOWN INDICATION

REACTIONS (6)
  - ANAEMIA [None]
  - CONVULSION [None]
  - DRUG INTERACTION [None]
  - HEPATITIS C [None]
  - IMPAIRED DRIVING ABILITY [None]
  - SQUAMOUS CELL CARCINOMA [None]
